FAERS Safety Report 6233948-6 (Version None)
Quarter: 2009Q2

REPORT INFORMATION
  Report Type: 
  Country: None (occurrence: None)
  Receive Date: 20090618
  Receipt Date: 20090609
  Transmission Date: 20091009
  Serious: Yes (Life-Threatening)
  Sender: FDA-Public Use
  Company Number: JP-BAYER-200911811BYL

PATIENT
  Age: 38 Year
  Sex: Male
  Weight: 75 kg

DRUGS (26)
  1. ADALAT [Suspect]
     Indication: HYPERTENSION
     Dosage: TOTAL DAILY DOSE: 400 MG  UNIT DOSE: 20 MG
     Route: 048
     Dates: start: 20090601, end: 20090601
  2. DIOVAN [Concomitant]
     Route: 048
     Dates: start: 20090427, end: 20090601
  3. DIOVAN [Concomitant]
     Route: 048
     Dates: start: 20090603
  4. FLUITRAN [Concomitant]
     Route: 048
     Dates: start: 20090508, end: 20090601
  5. LASIX [Concomitant]
     Route: 048
     Dates: start: 20090424, end: 20090601
  6. LASIX [Concomitant]
     Route: 048
     Dates: start: 20090603
  7. TAKEPRON [Concomitant]
     Route: 048
     Dates: start: 20090212, end: 20090601
  8. ADALAT CC [Concomitant]
     Dosage: UNIT DOSE: 20 MG
     Route: 048
     Dates: start: 20090115, end: 20090601
  9. ADALAT CC [Concomitant]
     Dosage: UNIT DOSE: 40 MG
     Route: 048
     Dates: start: 20090606
  10. ADALAT CC [Concomitant]
     Dosage: UNIT DOSE: 40 MG
     Route: 048
     Dates: start: 20090122, end: 20090601
  11. TENORMIN [Concomitant]
     Route: 048
     Dates: start: 20090507, end: 20090601
  12. CRESTOR [Concomitant]
     Route: 048
     Dates: start: 20090205, end: 20090601
  13. ADALAT [Concomitant]
     Route: 048
     Dates: start: 20090605
  14. ADALAT [Concomitant]
     Route: 048
     Dates: start: 20090115, end: 20090601
  15. HIRNAMIN [Concomitant]
     Route: 048
     Dates: end: 20090601
  16. HIRNAMIN [Concomitant]
     Route: 048
     Dates: start: 20090605
  17. EURODIN [Concomitant]
     Route: 048
     Dates: start: 20090605
  18. EURODIN [Concomitant]
     Route: 048
     Dates: end: 20090601
  19. SILECE [Concomitant]
     Route: 048
     Dates: start: 20090605
  20. SILECE [Concomitant]
     Route: 048
     Dates: end: 20090601
  21. RESLIN [Concomitant]
     Route: 048
     Dates: start: 20090605
  22. RESLIN [Concomitant]
     Route: 048
     Dates: end: 20090601
  23. LEXOTAN [Concomitant]
     Route: 048
     Dates: start: 20090605
  24. LEXOTAN [Concomitant]
     Route: 048
     Dates: end: 20090601
  25. TOLEDOMIN [Concomitant]
     Route: 048
     Dates: start: 20090605
  26. TOLEDOMIN [Concomitant]
     Route: 048
     Dates: end: 20090601

REACTIONS (2)
  - HYPOTENSION [None]
  - RENAL FAILURE ACUTE [None]
